FAERS Safety Report 9254348 (Version 1)
Quarter: 2013Q2

REPORT INFORMATION
  Report Type: Spontaneous
  Country: BE (occurrence: None)
  Receive Date: 20130419
  Receipt Date: 20130419
  Transmission Date: 20140414
  Serious: Yes (Hospitalization)
  Sender: FDA-Public Use
  Company Number: SYM-2013-02673

PATIENT
  Age: 63 Year
  Sex: Female

DRUGS (6)
  1. FLAGYL [Suspect]
     Indication: HELICOBACTER GASTRITIS
     Route: 048
     Dates: start: 20130218, end: 20130218
  2. ELTHYRONE (LEVOTHYROXINE SODIUM) (LEVOTHYROXINE SODIUM) [Concomitant]
  3. ORTHO-GYNEST (ESTRIOL) (ESTRIOL) [Concomitant]
  4. ZOCOR (SIMVASTATIN) (SIMVASTATIN) [Concomitant]
  5. PANTOMED (PANTOPRAZOLE SODIUM SESQUIHYDRATE) (PANTOPRAZOLE SODIUM SESQUIHYDRATE) [Concomitant]
  6. NOBITEN (NEBIVOLOL) (NEBIVOLOL) [Concomitant]

REACTIONS (4)
  - Respiratory distress [None]
  - Flushing [None]
  - Paraesthesia [None]
  - Diplegia [None]
